FAERS Safety Report 7713876-7 (Version None)
Quarter: 2011Q3

REPORT INFORMATION
  Report Type: 
  Country: None (occurrence: None)
  Receive Date: 20110826
  Receipt Date: 20110819
  Transmission Date: 20111222
  Serious: Yes (Hospitalization, Other)
  Sender: FDA-Public Use
  Company Number: PHEH2005US01797

PATIENT
  Sex: Male
  Weight: 97.506 kg

DRUGS (42)
  1. LEVAQUIN [Concomitant]
  2. VALIUM [Concomitant]
  3. BACLOFEN [Concomitant]
     Dosage: 10 MG, TID
  4. AREDIA [Suspect]
     Indication: OSTEOPOROSIS
     Dosage: 90 MG, QMO
     Dates: start: 19970827, end: 20021010
  5. ANDROGEL [Concomitant]
  6. DURAGESIC-100 [Concomitant]
     Dosage: 50 UG, EVERY THREE DAYS
  7. VIAGRA [Concomitant]
  8. RIMANTADINE HYDROCHLORIDE [Concomitant]
  9. FENTANYL [Concomitant]
  10. ROXICODONE [Concomitant]
  11. NEURONTIN [Concomitant]
  12. FAMOTIDINE [Concomitant]
  13. FLUMADINE [Concomitant]
  14. AMOXIL [Concomitant]
  15. ZOMETA [Suspect]
     Indication: OSTEOPOROSIS
     Dosage: 4 MG, QMO
     Dates: start: 20021210, end: 20040923
  16. OXYCONTIN [Concomitant]
  17. DIFLUCAN [Concomitant]
  18. CARISOPRODOL [Concomitant]
  19. PREDNISONE [Concomitant]
  20. METHADONE HCL [Concomitant]
     Dosage: 30 MG, TID
  21. ZANAFLEX [Concomitant]
     Dosage: 2 MG, TID
  22. PRILOSEC [Concomitant]
  23. FLEXERIL [Concomitant]
  24. ETODOLAC [Concomitant]
     Dosage: 1 DF, BID
     Route: 048
  25. DIAZEPAM [Concomitant]
  26. ACETAMINOPHEN AND HYDROCODONE BITARTRATE [Concomitant]
  27. AMBIEN [Concomitant]
  28. AVELOX [Concomitant]
  29. PERCOCET [Concomitant]
  30. METHADONE HCL [Concomitant]
     Dosage: 50 MG, IN DIVIDED DOSES
  31. NABUMETONE [Concomitant]
  32. MORPHINE SULFATE [Concomitant]
  33. VITAMIN TAB [Concomitant]
  34. OXYCODONE HCL [Concomitant]
  35. HYDROMORPHONE HCL [Concomitant]
  36. SOMA [Concomitant]
     Dosage: 300 MG, UNK
  37. ALPRAZOLAM [Concomitant]
  38. CELEBREX [Concomitant]
  39. GUIATUSS A.C. [Concomitant]
  40. DILAUDID [Concomitant]
     Dosage: 4 MG, BID
  41. EFFEXOR [Concomitant]
     Dosage: 1 DF, BID
  42. METHADONE HCL [Concomitant]
     Dosage: 2 DF, TID

REACTIONS (65)
  - TOOTH DEPOSIT [None]
  - WOUND DEHISCENCE [None]
  - OSTEOMYELITIS [None]
  - LOOSE TOOTH [None]
  - PROTHROMBIN TIME PROLONGED [None]
  - CHEST PAIN [None]
  - PAIN IN JAW [None]
  - SPINAL FRACTURE [None]
  - LUMBAR RADICULOPATHY [None]
  - ARTHRALGIA [None]
  - OSTEOPOROSIS [None]
  - SPONDYLOARTHROPATHY [None]
  - DYSPEPSIA [None]
  - POLYP [None]
  - VENOUS OCCLUSION [None]
  - JAW DISORDER [None]
  - ARTHRITIS [None]
  - IMPAIRED HEALING [None]
  - INTERVERTEBRAL DISC DEGENERATION [None]
  - BACK DISORDER [None]
  - MUSCULAR WEAKNESS [None]
  - MUSCULOSKELETAL DISCOMFORT [None]
  - BONE DISORDER [None]
  - EMPHYSEMA [None]
  - RADICULAR PAIN [None]
  - PAIN IN EXTREMITY [None]
  - INFLUENZA [None]
  - HEPATOMEGALY [None]
  - LUNG INFILTRATION [None]
  - POSTOPERATIVE WOUND COMPLICATION [None]
  - ANKYLOSING SPONDYLITIS [None]
  - OEDEMA PERIPHERAL [None]
  - DEEP VEIN THROMBOSIS [None]
  - DRY MOUTH [None]
  - SENSITIVITY OF TEETH [None]
  - GINGIVAL BLEEDING [None]
  - HEPATIC STEATOSIS [None]
  - LYMPHADENOPATHY [None]
  - DENTAL CARIES [None]
  - PRIMARY SEQUESTRUM [None]
  - ERYTHEMA [None]
  - JOINT CREPITATION [None]
  - FORAMEN MAGNUM STENOSIS [None]
  - HYPOXIA [None]
  - LYMPHADENOPATHY MEDIASTINAL [None]
  - INTERVERTEBRAL DISC DISPLACEMENT [None]
  - MUSCULOSKELETAL PAIN [None]
  - NECK PAIN [None]
  - HYPOAESTHESIA [None]
  - OSTEONECROSIS OF JAW [None]
  - TOOTHACHE [None]
  - INTERVERTEBRAL DISC PROTRUSION [None]
  - OSTEOARTHRITIS [None]
  - GAIT DISTURBANCE [None]
  - COORDINATION ABNORMAL [None]
  - ODONTOGENIC CYST [None]
  - DYSPNOEA [None]
  - SOFT TISSUE DISORDER [None]
  - PULMONARY EMBOLISM [None]
  - ORAL PAIN [None]
  - CARDIOVASCULAR DISORDER [None]
  - BACK PAIN [None]
  - ATELECTASIS [None]
  - FLATBACK SYNDROME [None]
  - SENSORY DISTURBANCE [None]
